FAERS Safety Report 8912883 (Version 1)
Quarter: 2012Q4

REPORT INFORMATION
  Report Type: 
  Country: US (occurrence: US)
  Receive Date: 20121116
  Receipt Date: 20121116
  Transmission Date: 20130627
  Serious: Yes (Other)
  Sender: FDA-Public Use
  Company Number: US-GLAXOSMITHKLINE-A1000268A

PATIENT
  Age: 32 Year
  Sex: Female

DRUGS (6)
  1. LAMICTAL [Suspect]
     Indication: BIPOLAR DISORDER
     Dosage: 400MG Twice per day
     Route: 048
     Dates: start: 2006
  2. ZYRTEC [Concomitant]
  3. VYVANSE [Concomitant]
  4. KLONOPIN [Concomitant]
  5. ALBUTEROL [Concomitant]
  6. CORTICOSTEROID [Concomitant]

REACTIONS (12)
  - Convulsion [Recovered/Resolved]
  - Accidental overdose [Recovered/Resolved]
  - Feeling abnormal [Recovered/Resolved]
  - Hyperhidrosis [Recovered/Resolved]
  - Eye movement disorder [Recovered/Resolved]
  - Vomiting [Recovered/Resolved]
  - Diarrhoea [Recovered/Resolved]
  - Abasia [Recovered/Resolved]
  - Blindness [Recovered/Resolved]
  - Eyelid ptosis [Recovering/Resolving]
  - Depression [Recovering/Resolving]
  - Cold sweat [Recovered/Resolved]
